FAERS Safety Report 20481422 (Version 1)
Quarter: 2022Q1

REPORT INFORMATION
  Report Type: Spontaneous
  Country: US (occurrence: None)
  Receive Date: 20220216
  Receipt Date: 20220216
  Transmission Date: 20220423
  Serious: Yes (Life-Threatening, Hospitalization)
  Sender: FDA-Public Use
  Company Number: None

PATIENT
  Age: 23 Year
  Sex: Male
  Weight: 108 kg

DRUGS (1)
  1. ONCASPAR [Suspect]
     Active Substance: PEGASPARGASE
     Indication: Acute lymphocytic leukaemia
     Dosage: OTHER FREQUENCY : ONCE;?
     Route: 042
     Dates: start: 20220214, end: 20220214

REACTIONS (6)
  - Abdominal discomfort [None]
  - Malaise [None]
  - Blood pressure systolic increased [None]
  - Hyperhidrosis [None]
  - Chest discomfort [None]
  - Oropharyngeal discomfort [None]

NARRATIVE: CASE EVENT DATE: 20220214
